FAERS Safety Report 12828836 (Version 1)
Quarter: 2016Q4

REPORT INFORMATION
  Report Type: Spontaneous
  Country: US (occurrence: US)
  Receive Date: 20161007
  Receipt Date: 20161007
  Transmission Date: 20170207
  Serious: No
  Sender: FDA-Public Use
  Company Number: US-SA-2015SA166447

PATIENT
  Age: 58 Year
  Sex: Female
  Weight: 71.1 kg

DRUGS (24)
  1. ASPIRIN. [Concomitant]
     Active Substance: ASPIRIN
  2. VITAMIN D [Concomitant]
     Active Substance: CHOLECALCIFEROL
  3. AUBAGIO [Suspect]
     Active Substance: TERIFLUNOMIDE
     Indication: MULTIPLE SCLEROSIS
     Route: 048
     Dates: start: 20141218
  4. AUBAGIO [Suspect]
     Active Substance: TERIFLUNOMIDE
     Indication: MULTIPLE SCLEROSIS
     Route: 048
     Dates: start: 2015
  5. BENADRYL [Concomitant]
     Active Substance: DIPHENHYDRAMINE HYDROCHLORIDE
  6. ADVIL [Concomitant]
     Active Substance: IBUPROFEN
  7. ALEVE [Concomitant]
     Active Substance: NAPROXEN SODIUM
  8. BIOTIN [Concomitant]
     Active Substance: BIOTIN
  9. BETHANECHOL CHLORIDE. [Concomitant]
     Active Substance: BETHANECHOL CHLORIDE
  10. COUMADIN [Concomitant]
     Active Substance: WARFARIN SODIUM
  11. AMPYRA [Suspect]
     Active Substance: DALFAMPRIDINE
     Indication: GAIT DISTURBANCE
     Route: 048
     Dates: start: 20130801
  12. SOMINEX /USA/ [Concomitant]
  13. PEPCID AC [Concomitant]
     Active Substance: FAMOTIDINE
  14. ZANTAC [Concomitant]
     Active Substance: RANITIDINE HYDROCHLORIDE
  15. TYLENOL [Concomitant]
     Active Substance: ACETAMINOPHEN
  16. KETOPROFEN. [Concomitant]
     Active Substance: KETOPROFEN
  17. TAGAMET [Concomitant]
     Active Substance: CIMETIDINE
  18. FISH OIL [Concomitant]
     Active Substance: FISH OIL
  19. MANGANESE/GLUCOSAMINE SULFATE/CHONDROITIN SULFATE/ASCORBIC ACID [Concomitant]
  20. PRILOSEC [Concomitant]
     Active Substance: OMEPRAZOLE MAGNESIUM
  21. CALCIUM [Concomitant]
     Active Substance: CALCIUM
  22. TRAZODONE HYDROCHLORIDE. [Concomitant]
     Active Substance: TRAZODONE HYDROCHLORIDE
  23. CLARITIN [Concomitant]
     Active Substance: LORATADINE
  24. JANTOVEN [Concomitant]
     Active Substance: WARFARIN SODIUM

REACTIONS (2)
  - Rash erythematous [Recovering/Resolving]
  - Rash pruritic [Recovering/Resolving]

NARRATIVE: CASE EVENT DATE: 2015
